FAERS Safety Report 5236690-3 (Version None)
Quarter: 2007Q1

REPORT INFORMATION
  Report Type: 
  Country: None (occurrence: None)
  Receive Date: 20070209
  Receipt Date: 20070129
  Transmission Date: 20070707
  Serious: Yes (Hospitalization)
  Sender: FDA-Public Use
  Company Number: 2007-00240

PATIENT
  Age: 51 Year
  Sex: Male

DRUGS (4)
  1. VELCADE [Suspect]
     Indication: MULTIPLE MYELOMA
     Dosage: 2.60 MG
     Dates: start: 20070115, end: 20070125
  2. ZOMETA [Concomitant]
  3. LANSOPRAZOLE [Concomitant]
  4. BAKTAK (SULFAMETHOXAZOLE, TRIMETHOPRIM) [Concomitant]

REACTIONS (4)
  - LUNG DISORDER [None]
  - MALAISE [None]
  - PO2 DECREASED [None]
  - PYREXIA [None]
